APPROVED DRUG PRODUCT: ULTRA-TECHNEKOW V4
Active Ingredient: TECHNETIUM TC-99M SODIUM PERTECHNETATE GENERATOR
Strength: 1-19 CI/GENERATOR
Dosage Form/Route: SOLUTION;INTRAVENOUS
Application: N017243 | Product #003
Applicant: CURIUM US LLC
Approved: Feb 18, 2014 | RLD: Yes | RS: Yes | Type: RX